FAERS Safety Report 16884142 (Version 3)
Quarter: 2020Q1

REPORT INFORMATION
  Report Type: Spontaneous
  Country: US (occurrence: US)
  Receive Date: 20191004
  Receipt Date: 20200107
  Transmission Date: 20200409
  Serious: Yes (Hospitalization, Disabling)
  Sender: FDA-Public Use
  Company Number: US-009507513-1909USA014661

PATIENT
  Age: 53 Year
  Sex: Female

DRUGS (2)
  1. LISINOPRIL. [Suspect]
     Active Substance: LISINOPRIL
     Indication: HYPERTENSION
     Dosage: 30 MG PER DAY
     Route: 048
     Dates: start: 201901, end: 201909
  2. LISINOPRIL. [Suspect]
     Active Substance: LISINOPRIL
     Dosage: TAKING HALF OF HER PRESCRIBED DOSE
     Route: 048
     Dates: start: 201909, end: 20190923

REACTIONS (5)
  - Spinal stenosis [Not Recovered/Not Resolved]
  - Intentional product misuse [Unknown]
  - Malaise [Unknown]
  - Blood pressure inadequately controlled [Not Recovered/Not Resolved]
  - Product availability issue [Unknown]

NARRATIVE: CASE EVENT DATE: 2019
